FAERS Safety Report 16248776 (Version 2)
Quarter: 2019Q2

REPORT INFORMATION
  Report Type: Spontaneous
  Country: US (occurrence: US)
  Receive Date: 20190429
  Receipt Date: 20190524
  Transmission Date: 20190711
  Serious: Yes (Hospitalization, Other)
  Sender: FDA-Public Use
  Company Number: US-AUROBINDO-AUR-APL-2019-022461

PATIENT

DRUGS (5)
  1. FLUOROURACIL. [Suspect]
     Active Substance: FLUOROURACIL
     Indication: ADENOCARCINOMA GASTRIC
     Dosage: UNK
     Route: 065
  2. CARBOPLATIN. [Suspect]
     Active Substance: CARBOPLATIN
     Indication: ADENOCARCINOMA GASTRIC
     Dosage: UNK, 3 CYCLE
     Route: 065
  3. FOLATE SODIUM [Suspect]
     Active Substance: FOLATE SODIUM
     Indication: PRODUCT USED FOR UNKNOWN INDICATION
     Dosage: 1 MILLIGRAM, ONCE A DAY
     Route: 065
  4. CAPECITABINE. [Suspect]
     Active Substance: CAPECITABINE
     Indication: ADENOCARCINOMA GASTRIC
     Dosage: 1000 MILLIGRAM/SQ. METER, TWO TIMES A DAY, DAILY FOR 14 DAYS
  5. CAPECITABINE. [Suspect]
     Active Substance: CAPECITABINE
     Dosage: 1000 MILLIGRAM/SQ. METER, RADIATION THERAPY

REACTIONS (11)
  - Delirium [Unknown]
  - Self-medication [Unknown]
  - Encephalopathy [Recovering/Resolving]
  - Confusional state [Recovered/Resolved]
  - Urinary tract infection [Unknown]
  - Hepatic steatosis [Unknown]
  - Muscular weakness [Not Recovered/Not Resolved]
  - Ataxia [Unknown]
  - Lethargy [Unknown]
  - Weight decreased [Recovered/Resolved]
  - Hyperammonaemia [Recovering/Resolving]
